FAERS Safety Report 7220395-3 (Version None)
Quarter: 2011Q1

REPORT INFORMATION
  Report Type: 
  Country: None (occurrence: None)
  Receive Date: 20110111
  Receipt Date: 20101228
  Transmission Date: 20110831
  Serious: Yes (Other)
  Sender: FDA-Public Use
  Company Number: US-MYLANLABS-2011S1000642

PATIENT
  Age: 49 Year
  Sex: Female

DRUGS (2)
  1. SOTRADECOL [Suspect]
     Indication: TELANGIECTASIA
     Route: 042
     Dates: start: 20101001
  2. SOTRADECOL [Suspect]
     Indication: SPIDER VEIN
     Route: 042
     Dates: start: 20101001

REACTIONS (3)
  - PRESYNCOPE [None]
  - COUGH [None]
  - WRONG TECHNIQUE IN DRUG USAGE PROCESS [None]
